FAERS Safety Report 10027801 (Version 1)
Quarter: 2014Q1

REPORT INFORMATION
  Report Type: Spontaneous
  Country: IT (occurrence: None)
  Receive Date: 20140318
  Receipt Date: 20140318
  Transmission Date: 20141002
  Serious: Yes (Other)
  Sender: FDA-Public Use
  Company Number: VAL_02541_2013

PATIENT
  Sex: Female

DRUGS (6)
  1. METOPROLOL (METOPROLOL-METOPROLOL TARTRATE) [Suspect]
     Indication: PRODUCT USED FOR UNKNOWN INDICATION
     Route: 048
     Dates: start: 20120311, end: 20130310
  2. GLYCERYL TRINITRATE [Suspect]
     Indication: PRODUCT USED FOR UNKNOWN INDICATION
     Route: 062
     Dates: start: 20120311, end: 20130310
  3. CARVASIN [Suspect]
     Indication: PRODUCT USED FOR UNKNOWN INDICATION
     Dosage: 5 MG REGIMEN
     Route: 060
     Dates: start: 20120310, end: 20130310
  4. DUOPLAVIN [Concomitant]
  5. PANTOPRAZOLE [Concomitant]
  6. ATORVASTATIN [Concomitant]

REACTIONS (1)
  - Syncope [None]
